FAERS Safety Report 10625951 (Version 2)
Quarter: 2015Q1

REPORT INFORMATION
  Report Type: Spontaneous
  Country: DE (occurrence: DE)
  Receive Date: 20141204
  Receipt Date: 20150211
  Transmission Date: 20150720
  Serious: Yes (Other)
  Sender: FDA-Public Use
  Company Number: DE-JNJFOC-20141117465

PATIENT
  Sex: Female
  Weight: 63 kg

DRUGS (6)
  1. XARELTO [Suspect]
     Active Substance: RIVAROXABAN
     Indication: ATRIAL FIBRILLATION
     Route: 048
     Dates: start: 20140901
  2. AMLODIPINE [Concomitant]
     Active Substance: AMLODIPINE BESYLATE
     Route: 065
  3. CANDESARTAN [Concomitant]
     Active Substance: CANDESARTAN
     Route: 065
  4. TORASEMIDE [Concomitant]
     Active Substance: TORSEMIDE
     Route: 065
  5. XARELTO [Suspect]
     Active Substance: RIVAROXABAN
     Indication: CEREBROVASCULAR ACCIDENT PROPHYLAXIS
     Route: 048
     Dates: start: 20140901
  6. PRAVASTATIN [Concomitant]
     Active Substance: PRAVASTATIN\PRAVASTATIN SODIUM
     Route: 065

REACTIONS (1)
  - Renal impairment [Not Recovered/Not Resolved]
